FAERS Safety Report 5294106-5 (Version None)
Quarter: 2007Q1

REPORT INFORMATION
  Report Type: 
  Country: None (occurrence: None)
  Receive Date: 20070116
  Receipt Date: 20060410
  Transmission Date: 20070707
  Serious: Yes (Other)
  Sender: FDA-Public Use
  Company Number: HQWYE412723JUL04

PATIENT
  Age: 61 Year
  Sex: Female
  Weight: 64.92 kg

DRUGS (3)
  1. PREMPRO [Suspect]
  2. PREMARIN [Suspect]
  3. PROVERA [Suspect]

REACTIONS (3)
  - ANXIETY [None]
  - BREAST CANCER [None]
  - MOOD SWINGS [None]
